FAERS Safety Report 8190440-X (Version None)
Quarter: 2012Q1

REPORT INFORMATION
  Report Type: 
  Country: None (occurrence: None)
  Receive Date: 20120307
  Receipt Date: 20120223
  Transmission Date: 20120608
  Serious: Yes (Life-Threatening, Hospitalization, Other)
  Sender: FDA-Public Use
  Company Number: ES-PFIZER INC-2012059542

PATIENT
  Age: 79 Year
  Sex: Female

DRUGS (6)
  1. IDAPTAN [Concomitant]
     Dosage: UNK
     Dates: end: 20090720
  2. RAMIPRIL [Suspect]
     Dosage: 5 MG, UNK
     Route: 048
     Dates: end: 20090720
  3. XIPAMIDE [Interacting]
     Indication: HYPERTENSION
     Dosage: 20 MG, UNK
     Route: 048
     Dates: start: 20070701, end: 20090720
  4. AMLODIPINO [Concomitant]
     Dosage: UNK
  5. POTASION [Concomitant]
     Dosage: UNK
     Dates: start: 20080101, end: 20090720
  6. DISGREN [Concomitant]
     Dosage: UNK

REACTIONS (4)
  - HYPONATRAEMIA [None]
  - CEREBRAL INFARCTION [None]
  - DRUG INTERACTION [None]
  - HYPOKALAEMIA [None]
